FAERS Safety Report 18566006 (Version 5)
Quarter: 2025Q3

REPORT INFORMATION
  Report Type: Spontaneous
  Country: EU (occurrence: EU)
  Receive Date: 20201201
  Receipt Date: 20250911
  Transmission Date: 20251020
  Serious: Yes (Life-Threatening, Hospitalization, Other)
  Sender: MYLAN
  Company Number: EU-SA-2020SA301678

PATIENT
  Age: 3 Year
  Sex: Female
  Weight: 14.08 kg

DRUGS (4)
  1. PREGABALIN [Suspect]
     Active Substance: PREGABALIN
     Indication: Product used for unknown indication
  2. PREGABALIN [Suspect]
     Active Substance: PREGABALIN
  3. PREGABALIN [Suspect]
     Active Substance: PREGABALIN
  4. PREGABALIN [Suspect]
     Active Substance: PREGABALIN
     Dosage: 300 MILLIGRAM, QD (300 MG, SINGLE (21.3 MG/KG)

REACTIONS (9)
  - Accidental exposure to product by child [Recovered/Resolved]
  - Miosis [Recovered/Resolved]
  - Coma [Recovered/Resolved]
  - Ataxia [Recovered/Resolved]
  - Coma scale abnormal [Recovered/Resolved]
  - Mydriasis [Recovered/Resolved]
  - Accidental overdose [Recovered/Resolved]
  - Medication error [Recovered/Resolved]
  - Intentional product misuse [Unknown]
